FAERS Safety Report 25925565 (Version 1)
Quarter: 2025Q4

REPORT INFORMATION
  Report Type: Spontaneous
  Country: GB (occurrence: None)
  Receive Date: 20251014
  Receipt Date: 20251014
  Transmission Date: 20260117
  Serious: Yes (Disabling)
  Sender: FDA-CTU
  Company Number: None

PATIENT
  Age: 24 Year
  Sex: Male
  Weight: 100 kg

DRUGS (2)
  1. SERTRALINE [Suspect]
     Active Substance: SERTRALINE HYDROCHLORIDE
     Indication: Obsessive-compulsive disorder
     Dates: start: 20220721
  2. ZOLOFT [Concomitant]
     Active Substance: SERTRALINE HYDROCHLORIDE

REACTIONS (7)
  - Withdrawal syndrome [None]
  - Headache [None]
  - Migraine [None]
  - Neck pain [None]
  - Poor quality sleep [None]
  - Depression [None]
  - Palpitations [None]

NARRATIVE: CASE EVENT DATE: 20250206
